FAERS Safety Report 5367700-0 (Version None)
Quarter: 2007Q2

REPORT INFORMATION
  Report Type: 
  Country: None (occurrence: None)
  Receive Date: 20070622
  Receipt Date: 20070316
  Transmission Date: 20071010
  Serious: No
  Sender: FDA-Public Use
  Company Number: US-ASTRAZENECA-2007UW05276

PATIENT
  Age: 13 Year
  Sex: Female

DRUGS (2)
  1. PULMICORT [Suspect]
     Route: 055
  2. ALBUTEROL [Suspect]

REACTIONS (3)
  - HEART RATE INCREASED [None]
  - MEDICATION ERROR [None]
  - TREMOR [None]
